FAERS Safety Report 9384658 (Version 1)
Quarter: 2013Q3

REPORT INFORMATION
  Report Type: Spontaneous
  Country: CO (occurrence: CO)
  Receive Date: 20130705
  Receipt Date: 20130705
  Transmission Date: 20140515
  Serious: Yes (Death)
  Sender: FDA-Public Use
  Company Number: CO-PFIZER INC-2013198146

PATIENT
  Age: 77 Year
  Sex: Male

DRUGS (1)
  1. SUTENT [Suspect]
     Indication: HEPATIC CANCER
     Dosage: UNK
     Route: 048
     Dates: start: 201205, end: 201211

REACTIONS (4)
  - Off label use [Fatal]
  - Cardiac arrest [Fatal]
  - Disease progression [Fatal]
  - Hepatic cancer [Fatal]
